FAERS Safety Report 11026620 (Version 1)
Quarter: 2015Q2

REPORT INFORMATION
  Report Type: Spontaneous
  Country: US (occurrence: US)
  Receive Date: 20150414
  Receipt Date: 20150414
  Transmission Date: 20150821
  Serious: Yes (Hospitalization, Other)
  Sender: FDA-Public Use
  Company Number: US-ELI_LILLY_AND_COMPANY-US201504001554

PATIENT
  Sex: Male

DRUGS (2)
  1. NOVOLOG [Concomitant]
     Active Substance: INSULIN ASPART
  2. INSULIN HUMAN [Suspect]
     Active Substance: INSULIN HUMAN
     Indication: DIABETES MELLITUS
     Dosage: UNK, PRN
     Route: 058
     Dates: start: 2009

REACTIONS (4)
  - Wrong technique in drug usage process [Unknown]
  - Blood glucose increased [Unknown]
  - Localised infection [Unknown]
  - Insulin resistant diabetes [Unknown]
